FAERS Safety Report 6303843-2 (Version None)
Quarter: 2009Q3

REPORT INFORMATION
  Report Type: 
  Country: None (occurrence: None)
  Receive Date: 20090807
  Receipt Date: 20090807
  Transmission Date: 20100115
  Serious: Yes (Hospitalization)
  Sender: FDA-Public Use
  Company Number: None

PATIENT
  Age: 50 Year
  Sex: Male
  Weight: 64.5 kg

DRUGS (1)
  1. ERTAPENEM [Suspect]
     Indication: OSTEOMYELITIS
     Dosage: 500 MG, AT BEDTIME, IV
     Route: 042
     Dates: start: 20090710, end: 20090719

REACTIONS (5)
  - CONFUSIONAL STATE [None]
  - DELIRIUM [None]
  - DRUG LEVEL INCREASED [None]
  - HALLUCINATION [None]
  - MENTAL STATUS CHANGES [None]
